FAERS Safety Report 4854826-0 (Version None)
Quarter: 2005Q4

REPORT INFORMATION
  Report Type: 
  Country: None (occurrence: None)
  Receive Date: 20051214
  Receipt Date: 20051214
  Transmission Date: 20060501
  Serious: Yes (Other)
  Sender: FDA-Public Use
  Company Number: None

PATIENT
  Age: 76 Year
  Sex: Female

DRUGS (2)
  1. ASMANEX TWISTHALER [Suspect]
     Indication: BRONCHIECTASIS
     Dosage: 1 PUFF DAILY
     Dates: start: 20051118, end: 20051210
  2. XOPENEX [Concomitant]

REACTIONS (1)
  - INFLUENZA LIKE ILLNESS [None]
